FAERS Safety Report 6305245-1 (Version None)
Quarter: 2009Q3

REPORT INFORMATION
  Report Type: 
  Country: None (occurrence: None)
  Receive Date: 20090811
  Receipt Date: 20090730
  Transmission Date: 20100115
  Serious: Yes (Other)
  Sender: FDA-Public Use
  Company Number: PHHY2009ZA31545

PATIENT
  Age: 84 Year
  Sex: Male

DRUGS (1)
  1. ACLASTA [Suspect]
     Dosage: 5 MG/100 ML

REACTIONS (3)
  - COMMUNICATION DISORDER [None]
  - DEMENTIA [None]
  - MINI MENTAL STATUS EXAMINATION ABNORMAL [None]
